FAERS Safety Report 10687686 (Version 1)
Quarter: 2014Q4

REPORT INFORMATION
  Report Type: Spontaneous
  Country: CN (occurrence: None)
  Receive Date: 20141230
  Receipt Date: 20141230
  Transmission Date: 20150529
  Serious: Yes (Other)
  Sender: FDA-Public Use
  Company Number: 2014SEB00073

PATIENT
  Age: 65 Year
  Sex: Female

DRUGS (1)
  1. MIACALCIN [Suspect]
     Active Substance: CALCITONIN SALMON
     Dosage: 50 IU, UNK, INTRAMUSCULAR
     Route: 030
     Dates: start: 20061013, end: 20061013

REACTIONS (8)
  - Nervousness [None]
  - Pollakiuria [None]
  - Faeces discoloured [None]
  - Abdominal pain [None]
  - Micturition urgency [None]
  - Rectal tenesmus [None]
  - Blood pressure increased [None]
  - Sinus tachycardia [None]

NARRATIVE: CASE EVENT DATE: 20061013
